FAERS Safety Report 6429785-X (Version None)
Quarter: 2009Q4

REPORT INFORMATION
  Report Type: 
  Country: None (occurrence: None)
  Receive Date: 20091106
  Receipt Date: 20091026
  Transmission Date: 20100525
  Serious: Yes (Other)
  Sender: FDA-Public Use
  Company Number: PHHY2009FR43348

PATIENT
  Sex: Female
  Weight: 59 kg

DRUGS (13)
  1. AREDIA [Suspect]
     Indication: MULTIPLE MYELOMA
     Dosage: 60 MG, UNK
     Route: 042
     Dates: start: 20080814
  2. AREDIA [Suspect]
     Dosage: 60 MG, UNK
     Route: 042
     Dates: start: 20080926
  3. AREDIA [Suspect]
     Dosage: 60 MG, UNK
     Route: 042
     Dates: start: 20081114
  4. ZOMETA [Suspect]
     Indication: MULTIPLE MYELOMA
     Dosage: 3.6 MG EVERY  6 WEEKS
     Route: 042
     Dates: start: 20081201, end: 20090701
  5. MELPHALAN [Concomitant]
     Dosage: 0.2 MG/KG (12 MG) FOR 4 DAYS EVERY 6 WEEKS
     Route: 048
  6. CORTANCYL [Concomitant]
     Indication: MULTIPLE MYELOMA
     Dosage: 60 MG, QD
     Route: 048
  7. CHEMOTHERAPEUTICS NOS [Concomitant]
     Indication: SPINAL DISORDER
  8. RADIOTHERAPY [Concomitant]
     Indication: SPINAL DISORDER
  9. CARDENSIEL [Concomitant]
     Indication: HYPERTENSION
     Dosage: 5 MG, QD
     Route: 048
  10. ESIDRIX [Concomitant]
     Indication: HYPERTENSION
     Dosage: 12.5 MG, QD
     Route: 048
  11. TAHOR [Concomitant]
     Indication: HYPERCHOLESTEROLAEMIA
     Dosage: 20 MG, QD
     Route: 048
  12. ESOMEPRAZOLE MAGNESIUM [Concomitant]
     Indication: GASTRIC ULCER
     Dosage: 20 MG, QD
     Route: 048
  13. DURAGESIC-100 [Concomitant]
     Dosage: 12 UG/HR, UNK

REACTIONS (5)
  - ABSCESS MANAGEMENT [None]
  - OSTEONECROSIS [None]
  - PAIN [None]
  - PURULENT DISCHARGE [None]
  - TOOTH EXTRACTION [None]
